FAERS Safety Report 6645742-2 (Version None)
Quarter: 2010Q1

REPORT INFORMATION
  Report Type: 
  Country: None (occurrence: None)
  Receive Date: 20100323
  Receipt Date: 20100310
  Transmission Date: 20100710
  Serious: Yes (Hospitalization)
  Sender: FDA-Public Use
  Company Number: TR-ELI_LILLY_AND_COMPANY-TR201003003893

PATIENT
  Age: 76 Year
  Sex: Female

DRUGS (6)
  1. HUMALOG MIX 75/25 [Suspect]
     Indication: DIABETES MELLITUS
     Dosage: 16 U, 3/D
     Route: 058
     Dates: start: 20090801
  2. LANTUS [Concomitant]
     Indication: DIABETES MELLITUS
     Dosage: 30 U, DAILY (1/D)
     Route: 058
  3. ALDACTONE [Concomitant]
     Dosage: UNK, DAILY (1/D)
     Route: 048
  4. DESAL [Concomitant]
     Dosage: UNK, DAILY (1/D)
     Route: 048
  5. ATOR [Concomitant]
     Dosage: UNK, DAILY (1/D)
     Route: 048
  6. ANTIHYPERTENSIVES [Concomitant]
     Dosage: UNK, DAILY (1/D)
     Route: 065

REACTIONS (3)
  - BLOOD GLUCOSE INCREASED [None]
  - HEPATOMEGALY [None]
  - OEDEMA [None]
